FAERS Safety Report 5896896-7 (Version None)
Quarter: 2008Q3

REPORT INFORMATION
  Report Type: 
  Country: None (occurrence: None)
  Receive Date: 20080924
  Receipt Date: 20080915
  Transmission Date: 20090109
  Serious: Yes (Other)
  Sender: FDA-Public Use
  Company Number: US-BAYER-200813774BCC

PATIENT

DRUGS (1)
  1. ALEVE [Suspect]

REACTIONS (1)
  - NO ADVERSE EVENT [None]
